FAERS Safety Report 9371481 (Version 1)
Quarter: 2013Q2

REPORT INFORMATION
  Report Type: Spontaneous
  Country: US (occurrence: US)
  Receive Date: 20130627
  Receipt Date: 20130627
  Transmission Date: 20140414
  Serious: Yes (Other)
  Sender: FDA-Public Use
  Company Number: US-SANOFI-AVENTIS-2013SA063907

PATIENT
  Sex: Female

DRUGS (3)
  1. LANTUS [Suspect]
     Route: 065
  2. LANTUS SOLOSTAR [Suspect]
     Route: 065
  3. SOLOSTAR [Suspect]

REACTIONS (2)
  - Lens disorder [Unknown]
  - Visual acuity reduced [Unknown]
